FAERS Safety Report 9137950 (Version 1)
Quarter: 2013Q1

REPORT INFORMATION
  Report Type: Spontaneous
  Country: ES (occurrence: ES)
  Receive Date: 20130304
  Receipt Date: 20130304
  Transmission Date: 20140127
  Serious: Yes (Hospitalization)
  Sender: FDA-Public Use
  Company Number: ES-BRISTOL-MYERS SQUIBB COMPANY-17407321

PATIENT
  Age: 69 Year
  Sex: Male

DRUGS (2)
  1. TAXOL INJ [Suspect]
     Indication: LUNG ADENOCARCINOMA STAGE IV
     Dosage: RECENT DOSE:01FEB2013 (DURATION: 11 DAYS)
     Route: 042
     Dates: start: 20130118
  2. CARBOPLATIN [Suspect]
     Indication: LUNG ADENOCARCINOMA STAGE IV
     Dosage: RECENT DOSE:01FEB2013 (DURATION: 11 DAYS)
     Route: 042
     Dates: start: 20130118

REACTIONS (1)
  - Pneumonitis chemical [Unknown]
